FAERS Safety Report 7110545-1 (Version None)
Quarter: 2010Q4

REPORT INFORMATION
  Report Type: 
  Country: None (occurrence: None)
  Receive Date: 20101118
  Receipt Date: 20101108
  Transmission Date: 20110411
  Serious: Yes (Other)
  Sender: FDA-Public Use
  Company Number: US-ROCHE-720581

PATIENT
  Sex: Male
  Weight: 70.3 kg

DRUGS (2)
  1. ACCUTANE [Suspect]
     Route: 065
     Dates: start: 19990601, end: 19991201
  2. RETIN-A [Concomitant]
     Route: 061
     Dates: start: 19991214

REACTIONS (8)
  - ABDOMINAL PAIN [None]
  - CROHN'S DISEASE [None]
  - ERYTHEMA [None]
  - LARGE INTESTINAL ULCER [None]
  - LIP DRY [None]
  - NAUSEA [None]
  - PILONIDAL CYST [None]
  - RECTAL HAEMORRHAGE [None]
